FAERS Safety Report 11099340 (Version 1)
Quarter: 2015Q2

REPORT INFORMATION
  Report Type: Report from Study
  Country: KR (occurrence: KR)
  Receive Date: 20150508
  Receipt Date: 20150508
  Transmission Date: 20150821
  Serious: Yes (Other)
  Sender: FDA-Public Use
  Company Number: KR-BAYER-2015-060975

PATIENT
  Age: 68 Year
  Sex: Female

DRUGS (2)
  1. NEXAVAR [Suspect]
     Active Substance: SORAFENIB
     Indication: HEPATOCELLULAR CARCINOMA
     Dosage: 400 MG, BID,
     Route: 048
     Dates: start: 201401
  2. NEXAVAR [Suspect]
     Active Substance: SORAFENIB
     Indication: HEPATOCELLULAR CARCINOMA
     Dosage: 200 MG, BID,ONE TABLET IN THE MORNING AND 1 TABLET IN THE DINNER
     Route: 048

REACTIONS (6)
  - Abasia [None]
  - Swelling face [None]
  - Hypertension [None]
  - Alopecia [None]
  - Skin exfoliation [None]
  - Rash macular [None]
